FAERS Safety Report 6971228-1 (Version None)
Quarter: 2010Q3

REPORT INFORMATION
  Report Type: 
  Country: None (occurrence: None)
  Receive Date: 20100908
  Receipt Date: 20100902
  Transmission Date: 20110219
  Serious: Yes (Hospitalization)
  Sender: FDA-Public Use
  Company Number: JP-EISAI INC.-E2090-01301-SPO-JP

PATIENT
  Age: 75 Year
  Sex: Female
  Weight: 48.5 kg

DRUGS (3)
  1. EXCEGRAN [Suspect]
     Indication: PRODUCT USED FOR UNKNOWN INDICATION
     Route: 048
  2. DEPAKENE [Concomitant]
     Route: 048
  3. REBAMIPIDE [Concomitant]
     Route: 048

REACTIONS (3)
  - LIP OEDEMA [None]
  - PHARYNGEAL OEDEMA [None]
  - RASH [None]
